FAERS Safety Report 21100829 (Version 1)
Quarter: 2022Q3

REPORT INFORMATION
  Report Type: Spontaneous
  Country: US (occurrence: None)
  Receive Date: 20220719
  Receipt Date: 20220719
  Transmission Date: 20221027
  Serious: No
  Sender: FDA-Public Use
  Company Number: None

PATIENT
  Age: 80 Year
  Sex: Female
  Weight: 81.19 kg

DRUGS (16)
  1. EVEROLIMUS [Suspect]
     Active Substance: EVEROLIMUS
     Indication: Breast cancer female
     Dosage: FREQUENCY : DAILY;?
     Route: 048
     Dates: start: 20220524, end: 20220719
  2. ACETAMINOPHEN [Concomitant]
     Active Substance: ACETAMINOPHEN
  3. ALLOPURINOL [Concomitant]
     Active Substance: ALLOPURINOL
  4. COENZYME Q10 [Concomitant]
     Active Substance: DIETARY SUPPLEMENT\UBIDECARENONE
  5. ELIQUIS [Concomitant]
     Active Substance: APIXABAN
  6. FEMARA [Concomitant]
     Active Substance: LETROZOLE
  7. FUROSEMIDE [Concomitant]
     Active Substance: FUROSEMIDE
  8. GABAPENTIN [Concomitant]
     Active Substance: GABAPENTIN
  9. HUMULIN NOS [Concomitant]
     Active Substance: INSULIN HUMAN
  10. LIPITOR [Concomitant]
     Active Substance: ATORVASTATIN CALCIUM
  11. METOPROLOL [Suspect]
     Active Substance: METOPROLOL
  12. NITROGLYCERIN [Concomitant]
     Active Substance: NITROGLYCERIN
  13. OMEGA 3 [Concomitant]
     Active Substance: CAPSAICIN
  14. SYNTHROID [Concomitant]
     Active Substance: LEVOTHYROXINE SODIUM
  15. TRAMADOL [Concomitant]
     Active Substance: TRAMADOL
  16. VITAMIN D [Concomitant]
     Active Substance: VITAMIN D NOS

REACTIONS (1)
  - Disease progression [None]
